FAERS Safety Report 5497289-7 (Version None)
Quarter: 2007Q4

REPORT INFORMATION
  Report Type: 
  Country: None (occurrence: None)
  Receive Date: 20071025
  Receipt Date: 20060925
  Transmission Date: 20080405
  Serious: No
  Sender: FDA-Public Use
  Company Number: A0621319A

PATIENT
  Age: 71 Year
  Sex: Male

DRUGS (6)
  1. ADVAIR DISKUS 100/50 [Suspect]
     Indication: CHRONIC OBSTRUCTIVE PULMONARY DISEASE
     Dosage: 1PUFF TWICE PER DAY
     Route: 055
     Dates: start: 20020101
  2. THEOPHYLLINE [Concomitant]
  3. NIFEDIPINE [Concomitant]
  4. PREDNISONE [Concomitant]
  5. ALBUTEROL [Concomitant]
  6. IPRATROPIUM BROMIDE [Concomitant]

REACTIONS (1)
  - SOMNOLENCE [None]
